FAERS Safety Report 5076458-4 (Version None)
Quarter: 2006Q3

REPORT INFORMATION
  Report Type: 
  Country: None (occurrence: None)
  Receive Date: 20060725
  Receipt Date: 20060419
  Transmission Date: 20061208
  Serious: No
  Sender: FDA-Public Use
  Company Number: 200612857BWH

PATIENT
  Age: 83 Year
  Sex: Male

DRUGS (7)
  1. NEXAVAR [Suspect]
     Indication: RENAL CELL CARCINOMA STAGE UNSPECIFIED
     Dosage: SEE IMAGE
     Route: 048
     Dates: start: 20060411
  2. NEXAVAR [Suspect]
     Indication: RENAL CELL CARCINOMA STAGE UNSPECIFIED
     Dosage: SEE IMAGE
     Route: 048
     Dates: start: 20060505
  3. VICODIN [Concomitant]
  4. TOPROL-XL [Concomitant]
  5. ISOSORBIDE DINITRATE [Concomitant]
  6. LASIX [Concomitant]
  7. CALCIUM GLUCONATE [Concomitant]

REACTIONS (9)
  - ALOPECIA [None]
  - BLISTER [None]
  - DECREASED APPETITE [None]
  - ERYTHEMA [None]
  - FATIGUE [None]
  - HEADACHE [None]
  - PAIN IN EXTREMITY [None]
  - PRURITUS [None]
  - SKIN EXFOLIATION [None]
